FAERS Safety Report 13372895 (Version 1)
Quarter: 2017Q1

REPORT INFORMATION
  Report Type: Spontaneous
  Country: US (occurrence: US)
  Receive Date: 20170326
  Receipt Date: 20170326
  Transmission Date: 20170429
  Serious: Yes (Disabling)
  Sender: FDA-Public Use
  Company Number: None

PATIENT
  Age: 41 Year
  Sex: Female
  Weight: 54 kg

DRUGS (3)
  1. CIPROFLOXICIN [Suspect]
     Active Substance: CIPROFLOXACIN
     Indication: EAR INFECTION
     Dosage: ?          QUANTITY:20 TABLET(S);?
     Route: 048
     Dates: start: 20160802, end: 20160809
  2. FLAXSEED [Concomitant]
     Active Substance: FLAX SEED
  3. MULTIVITAMIN [Concomitant]
     Active Substance: VITAMINS

REACTIONS (14)
  - Tendon pain [None]
  - Fatigue [None]
  - Pain in extremity [None]
  - Cartilage injury [None]
  - Migraine [None]
  - Neuropathy peripheral [None]
  - Alopecia [None]
  - Muscle spasms [None]
  - Tinnitus [None]
  - Confusional state [None]
  - Nerve injury [None]
  - Arthralgia [None]
  - Dizziness [None]
  - Deafness [None]

NARRATIVE: CASE EVENT DATE: 20160809
